FAERS Safety Report 9860585 (Version 2)
Quarter: 2014Q1

REPORT INFORMATION
  Report Type: Spontaneous
  Country: FR (occurrence: FR)
  Receive Date: 20140202
  Receipt Date: 20140202
  Transmission Date: 20141002
  Serious: No
  Sender: FDA-Public Use
  Company Number: FR-ALLERGAN-1203595US

PATIENT
  Age: 54 Year
  Sex: Female

DRUGS (4)
  1. VISTABEL [Suspect]
     Indication: SKIN WRINKLING
     Dosage: UNK
     Route: 030
     Dates: start: 20120308, end: 20120308
  2. VISTABEL [Suspect]
     Dosage: UNK
     Dates: start: 201108, end: 201108
  3. BOTOX [Suspect]
     Indication: SKIN WRINKLING
     Dosage: UNK
     Route: 030
  4. AZZALURE [Suspect]
     Dosage: UNK
     Dates: start: 20120308, end: 20120308

REACTIONS (5)
  - Eczema [Recovered/Resolved]
  - Prurigo [Recovered/Resolved]
  - Skin reaction [Recovered/Resolved]
  - Skin plaque [Recovered/Resolved]
  - Eyelid oedema [Recovered/Resolved]
